FAERS Safety Report 22150748 (Version 2)
Quarter: 2023Q1

REPORT INFORMATION
  Report Type: Report from Study
  Country: US (occurrence: US)
  Receive Date: 20230329
  Receipt Date: 20230331
  Transmission Date: 20230417
  Serious: No
  Sender: FDA-Public Use
  Company Number: US-002147023-NVSC2022US303636

PATIENT
  Age: 46 Year
  Sex: Female

DRUGS (1)
  1. ENTRESTO [Suspect]
     Active Substance: SACUBITRIL\VALSARTAN
     Indication: Cardiac failure
     Dosage: UNK
     Route: 065
     Dates: start: 20150801

REACTIONS (2)
  - Influenza [Recovered/Resolved]
  - Aphonia [Recovered/Resolved]

NARRATIVE: CASE EVENT DATE: 20221201
